FAERS Safety Report 19709315 (Version 1)
Quarter: 2021Q3

REPORT INFORMATION
  Report Type: Report from Study
  Country: DE (occurrence: DE)
  Receive Date: 20210816
  Receipt Date: 20210816
  Transmission Date: 20211014
  Serious: Yes (Hospitalization, Other)
  Sender: FDA-Public Use
  Company Number: DE-PFIZER INC-2021869057

PATIENT

DRUGS (4)
  1. DILTIAZEM HCL [Suspect]
     Active Substance: DILTIAZEM HYDROCHLORIDE
     Dosage: UNK (HIGH DOSES)
  2. DIGOXIN. [Suspect]
     Active Substance: DIGOXIN
     Dosage: UNK (HIGH DOSES)
  3. OXAZEPAM. [Suspect]
     Active Substance: OXAZEPAM
     Dosage: UNK (HIGH DOSES)
  4. PHENPROCOUMON [Suspect]
     Active Substance: PHENPROCOUMON
     Dosage: UNK (HIGH DOSES)

REACTIONS (2)
  - Suicide attempt [Unknown]
  - Intentional overdose [Unknown]
